FAERS Safety Report 23659599 (Version 2)
Quarter: 2024Q2

REPORT INFORMATION
  Report Type: Spontaneous
  Country: US (occurrence: US)
  Receive Date: 20240321
  Receipt Date: 20240429
  Transmission Date: 20240716
  Serious: Yes (Other)
  Sender: FDA-Public Use
  Company Number: US-BAYER-2024A038976

PATIENT

DRUGS (1)
  1. ALEVE [Suspect]
     Active Substance: NAPROXEN SODIUM
     Indication: Analgesic therapy
     Dosage: UNK UNK, QD

REACTIONS (2)
  - Chronic kidney disease [Not Recovered/Not Resolved]
  - Pain [None]
